FAERS Safety Report 5270112-1 (Version None)
Quarter: 2007Q1

REPORT INFORMATION
  Report Type: 
  Country: None (occurrence: None)
  Receive Date: 20070320
  Receipt Date: 20070309
  Transmission Date: 20070707
  Serious: Yes (Other)
  Sender: FDA-Public Use
  Company Number: HQWYE112317NOV03

PATIENT
  Sex: Female

DRUGS (2)
  1. BLINDED THERAPY [Suspect]
     Indication: PSORIASIS
     Dosage: TWICE WEEKLY INJECTIONS
     Route: 058
     Dates: start: 20020412, end: 20020901
  2. 0.3MG NORGESTREL/0.03MG ETHINYL ESTRADIOL [Suspect]

REACTIONS (3)
  - ABORTION SPONTANEOUS [None]
  - MEDICATION ERROR [None]
  - UNINTENDED PREGNANCY [None]
